FAERS Safety Report 14750311 (Version 1)
Quarter: 2018Q2

REPORT INFORMATION
  Report Type: Spontaneous
  Country: FR (occurrence: FR)
  Receive Date: 20180412
  Receipt Date: 20180412
  Transmission Date: 20180711
  Serious: Yes (Other)
  Sender: FDA-Public Use
  Company Number: FR-009507513-1804FRA000622

PATIENT
  Age: 70 Year
  Sex: Male
  Weight: 90 kg

DRUGS (5)
  1. JANUMET [Suspect]
     Active Substance: METFORMIN HYDROCHLORIDE\SITAGLIPTIN PHOSPHATE
     Indication: TYPE 2 DIABETES MELLITUS
     Route: 048
     Dates: start: 20171101, end: 20171220
  2. ASPEGIC [Concomitant]
     Active Substance: ASPIRIN DL-LYSINE
     Route: 048
     Dates: start: 20171201, end: 20171208
  3. LYSOPAINE (BACITRACIN (+) LYSOZYME CHLORIDE (+) PAPAIN) [Concomitant]
     Route: 048
     Dates: start: 20171201, end: 20171208
  4. REPAGLINIDE. [Suspect]
     Active Substance: REPAGLINIDE
     Indication: TYPE 2 DIABETES MELLITUS
     Dosage: UNK
     Route: 048
     Dates: start: 20171101, end: 20171220
  5. AMOXICILLIN. [Concomitant]
     Active Substance: AMOXICILLIN
     Route: 048
     Dates: start: 20171201, end: 20171208

REACTIONS (1)
  - Cutaneous lupus erythematosus [Recovered/Resolved]

NARRATIVE: CASE EVENT DATE: 20171211
